FAERS Safety Report 22075052 (Version 1)
Quarter: 2023Q1

REPORT INFORMATION
  Report Type: Spontaneous
  Country: US (occurrence: US)
  Receive Date: 20230308
  Receipt Date: 20230308
  Transmission Date: 20230417
  Serious: No
  Sender: FDA-Public Use
  Company Number: US-ALLERGAN-2232949US

PATIENT

DRUGS (4)
  1. MESALAMINE [Suspect]
     Active Substance: MESALAMINE
     Indication: Colitis ulcerative
     Dosage: EXTENDED RELEASE CAPSULE, 4 TIMES A DAY, WITH A MEAL
  2. MESALAMINE [Suspect]
     Active Substance: MESALAMINE
     Dosage: TABLETS
  3. MESALAMINE [Suspect]
     Active Substance: MESALAMINE
     Indication: Colitis ulcerative
  4. MESALAMINE [Concomitant]
     Active Substance: MESALAMINE
     Indication: Colitis ulcerative

REACTIONS (14)
  - Inappropriate schedule of product administration [Unknown]
  - Colitis ulcerative [Unknown]
  - Illness [Unknown]
  - Patient dissatisfaction with treatment [Unknown]
  - Gait disturbance [Unknown]
  - Condition aggravated [Unknown]
  - Mood altered [Unknown]
  - Product dose omission issue [Unknown]
  - Muscle tightness [Unknown]
  - Flatulence [Unknown]
  - Headache [Unknown]
  - Nausea [Unknown]
  - Myalgia [Unknown]
  - Back pain [Unknown]
